APPROVED DRUG PRODUCT: ZOLMITRIPTAN
Active Ingredient: ZOLMITRIPTAN
Strength: 2.5MG
Dosage Form/Route: TABLET, ORALLY DISINTEGRATING;ORAL
Application: A202855 | Product #001
Applicant: RISING PHARMA HOLDING INC
Approved: Sep 20, 2019 | RLD: No | RS: No | Type: DISCN